FAERS Safety Report 4840016-4 (Version None)
Quarter: 2005Q4

REPORT INFORMATION
  Report Type: 
  Country: None (occurrence: None)
  Receive Date: 20051125
  Receipt Date: 20051115
  Transmission Date: 20060501
  Serious: Yes (Death)
  Sender: FDA-Public Use
  Company Number: A-CH2005-08995

PATIENT
  Age: 7 Year
  Sex: Female

DRUGS (4)
  1. ZAVESCA [Suspect]
     Indication: NIEMANN-PICK DISEASE
     Dosage: 100 MG, BID, ORAL
     Route: 048
     Dates: start: 20050130, end: 20050225
  2. IMODIUM [Concomitant]
  3. LOMOTIL (DIPHENYOXYLATE HYDROCHLORIDE, ATROPINE SULFATE) [Concomitant]
  4. AUGMENTIN '125' [Concomitant]

REACTIONS (4)
  - DIARRHOEA [None]
  - INJURY ASPHYXIATION [None]
  - OFF LABEL USE [None]
  - RESPIRATORY TRACT INFECTION [None]
